FAERS Safety Report 6522958-7 (Version None)
Quarter: 2009Q4

REPORT INFORMATION
  Report Type: 
  Country: None (occurrence: None)
  Receive Date: 20091222
  Receipt Date: 20091207
  Transmission Date: 20100525
  Serious: Yes (Hospitalization)
  Sender: FDA-Public Use
  Company Number: 1000010717

PATIENT
  Age: 41 Year
  Sex: Male

DRUGS (3)
  1. NEBIVOLOL HCL [Suspect]
     Indication: CARDIAC FAILURE
     Dosage: 5 MG (5 MG, 1 IN 1 D), ORAL
     Route: 048
     Dates: start: 20090928, end: 20091030
  2. FLUINDIONE [Suspect]
     Indication: ATRIAL FIBRILLATION
     Dosage: 20 MG (20 MG, 1 IN 1 D), ORAL
     Route: 048
     Dates: start: 20090928, end: 20091030
  3. FLECAINIDE ACETATE [Suspect]
     Indication: ARRHYTHMIA
     Dosage: ORAL
     Route: 048
     Dates: start: 20090928, end: 20091030

REACTIONS (4)
  - DRUG HYPERSENSITIVITY [None]
  - HEPATITIS [None]
  - LIVER INJURY [None]
  - SKIN TOXICITY [None]
